FAERS Safety Report 25528059 (Version 1)
Quarter: 2025Q3

REPORT INFORMATION
  Report Type: Spontaneous
  Country: CA (occurrence: CA)
  Receive Date: 20250708
  Receipt Date: 20250708
  Transmission Date: 20251020
  Serious: Yes (Disabling, Other)
  Sender: SANOFI AVENTIS
  Company Number: CA-SA-2024SA380078

PATIENT
  Age: 76 Year
  Sex: Male
  Weight: 94 kg

DRUGS (4)
  1. INSULIN ASPART [Suspect]
     Active Substance: INSULIN ASPART
     Indication: Type 2 diabetes mellitus
     Dosage: 12 U, TID
     Route: 058
     Dates: start: 202211
  2. INSULIN ASPART [Suspect]
     Active Substance: INSULIN ASPART
     Dosage: 6-12 U TID WITH MEALS
     Route: 058
     Dates: end: 202404
  3. TRESIBA [Concomitant]
     Active Substance: INSULIN DEGLUDEC
  4. KIRSTY [Concomitant]
     Active Substance: INSULIN ASPART-XJHZ
     Indication: Type 2 diabetes mellitus
     Dosage: 8-18 U TID WITH MEALS
     Route: 058
     Dates: start: 202404

REACTIONS (4)
  - Blindness [Not Recovered/Not Resolved]
  - Skin ulcer [Not Recovered/Not Resolved]
  - Diabetes mellitus inadequate control [Not Recovered/Not Resolved]
  - Product substitution issue [Unknown]

NARRATIVE: CASE EVENT DATE: 20221101
